FAERS Safety Report 5325845-5 (Version None)
Quarter: 2007Q2

REPORT INFORMATION
  Report Type: 
  Country: None (occurrence: None)
  Receive Date: 20070510
  Receipt Date: 20060512
  Transmission Date: 20071010
  Serious: Yes (Other)
  Sender: FDA-Public Use
  Company Number: 2006PO0056FU1

PATIENT
  Age: 49 Year
  Sex: Female

DRUGS (1)
  1. MEFENAMIC ACID [Suspect]
     Indication: MIGRAINE
     Dosage: 250 MG, TID, PO
     Route: 048
     Dates: start: 20050901, end: 20060226

REACTIONS (3)
  - COLITIS [None]
  - FAECAL INCONTINENCE [None]
  - IMPAIRED WORK ABILITY [None]
